FAERS Safety Report 5922190-1 (Version None)
Quarter: 2008Q3

REPORT INFORMATION
  Report Type: 
  Country: None (occurrence: None)
  Receive Date: 20080909
  Receipt Date: 20080609
  Transmission Date: 20090109
  Serious: Yes (Hospitalization)
  Sender: FDA-Public Use
  Company Number: 163-20785-08060433 (0)

PATIENT
  Age: 77 Year
  Sex: Female

DRUGS (2)
  1. THALOMID [Suspect]
     Indication: MULTIPLE MYELOMA
     Dosage: 150 MG, 3 IN 1 D, ORAL : 50MG-150MG, DAILY, ORAL
     Route: 048
     Dates: start: 20060915, end: 20070701
  2. THALOMID [Suspect]
     Indication: MULTIPLE MYELOMA
     Dosage: 150 MG, 3 IN 1 D, ORAL : 50MG-150MG, DAILY, ORAL
     Route: 048
     Dates: start: 20070724

REACTIONS (1)
  - SEPSIS [None]
